FAERS Safety Report 23575519 (Version 4)
Quarter: 2024Q3

REPORT INFORMATION
  Report Type: Spontaneous
  Country: EG (occurrence: EG)
  Receive Date: 20240228
  Receipt Date: 20240711
  Transmission Date: 20241016
  Serious: Yes (Death, Other)
  Sender: ABBVIE
  Company Number: EG-ABBVIE-5656788

PATIENT
  Age: 1 Day

DRUGS (1)
  1. SURVANTA [Suspect]
     Active Substance: BERACTANT
     Indication: Neonatal respiratory distress syndrome
     Dosage: 25MG/ML, 2 VIALS (EACH OF ONE 4 ML)
     Route: 039
     Dates: start: 20231230

REACTIONS (3)
  - Respiratory failure [Fatal]
  - Drug ineffective [Fatal]
  - Neonatal respiratory distress syndrome [Fatal]

NARRATIVE: CASE EVENT DATE: 20240101
